FAERS Safety Report 10653671 (Version 4)
Quarter: 2015Q1

REPORT INFORMATION
  Report Type: Spontaneous
  Country: IT (occurrence: IT)
  Receive Date: 20141216
  Receipt Date: 20150309
  Transmission Date: 20150720
  Serious: Yes (Life-Threatening, Hospitalization)
  Sender: FDA-Public Use
  Company Number: IT-ROCHE-1506648

PATIENT
  Age: 26 Year
  Sex: Male

DRUGS (3)
  1. CANNABIS [Concomitant]
     Active Substance: CANNABIS SATIVA SUBSP. INDICA TOP
  2. VALIUM [Suspect]
     Active Substance: DIAZEPAM
     Indication: STRESS
     Dosage: 5 MG/ML ORAL DROPS,SOLUTION 20 ML BOTTLE
     Route: 048
     Dates: start: 20141101, end: 20141101
  3. TRAMADOL HYDROCHLORIDE. [Suspect]
     Active Substance: TRAMADOL HYDROCHLORIDE
     Indication: STRESS
     Route: 048
     Dates: start: 20141101, end: 20141101

REACTIONS (6)
  - Vomiting [Recovering/Resolving]
  - Respiratory arrest [Recovering/Resolving]
  - Drug abuse [Unknown]
  - Anxiety [Recovering/Resolving]
  - Dyspnoea [Recovering/Resolving]
  - Loss of consciousness [Recovering/Resolving]

NARRATIVE: CASE EVENT DATE: 20141101
